FAERS Safety Report 10100811 (Version 1)
Quarter: 2014Q2

REPORT INFORMATION
  Report Type: Spontaneous
  Country: GB (occurrence: GB)
  Receive Date: 20140423
  Receipt Date: 20140423
  Transmission Date: 20141212
  Serious: Yes (Other)
  Sender: FDA-Public Use
  Company Number: GB-ASTELLAS-2014US004015

PATIENT
  Age: 41 Year
  Sex: Female

DRUGS (5)
  1. AMBISOME [Suspect]
     Indication: CANDIDA INFECTION
     Dosage: UNK, UNKNOWN FREQ.
     Route: 042
     Dates: start: 201208
  2. PREDNISOLONE [Concomitant]
     Indication: PRODUCT USED FOR UNKNOWN INDICATION
     Dosage: UNK UNK, UNKNOWN FREQ.
     Route: 065
  3. LIPID EMULSION [Concomitant]
     Indication: PRODUCT USED FOR UNKNOWN INDICATION
     Dosage: UNK UNK, UNKNOWN FREQ.
     Route: 065
  4. CO-AMOXICLAV                       /01000301/ [Concomitant]
     Indication: PRODUCT USED FOR UNKNOWN INDICATION
     Dosage: UNK UNK, UNKNOWN FREQ.
     Route: 065
  5. CEFTRIAXONE [Concomitant]
     Indication: PRODUCT USED FOR UNKNOWN INDICATION
     Dosage: UNK UNK, UNKNOWN FREQ.
     Route: 065

REACTIONS (1)
  - Stillbirth [Unknown]
